FAERS Safety Report 9154424 (Version 1)
Quarter: 2013Q1

REPORT INFORMATION
  Report Type: Report from Study
  Country: US (occurrence: US)
  Receive Date: 20130311
  Receipt Date: 20130311
  Transmission Date: 20140127
  Serious: No
  Sender: FDA-Public Use
  Company Number: US-ABBOTT-12P-163-0917010-00

PATIENT
  Age: 24 Year
  Sex: Female
  Weight: 49.03 kg

DRUGS (3)
  1. LUPRON DEPOT 11.25 MG [Suspect]
     Indication: ENDOMETRIOSIS
     Dates: start: 20120217
  2. NORETHINDRONE ACETATE [Suspect]
     Indication: HORMONE REPLACEMENT THERAPY
     Dates: start: 201202, end: 201202
  3. XANAX [Concomitant]
     Indication: ANXIETY

REACTIONS (2)
  - Nausea [Unknown]
  - Vomiting [Unknown]
